FAERS Safety Report 7656445-X (Version None)
Quarter: 2011Q3

REPORT INFORMATION
  Report Type: 
  Country: None (occurrence: None)
  Receive Date: 20110804
  Receipt Date: 20110722
  Transmission Date: 20111222
  Serious: Yes (Other)
  Sender: FDA-Public Use
  Company Number: JP-BAXTER-2011BH025311

PATIENT
  Sex: Female
  Weight: 2 kg

DRUGS (2)
  1. IMMUNE GLOBULIN INTRAVENOUS (HUMAN) [Suspect]
     Indication: CYTOMEGALOVIRUS INFECTION
     Route: 017
  2. IMMUNE GLOBULIN INTRAVENOUS (HUMAN) [Suspect]
     Indication: OFF LABEL USE
     Route: 017

REACTIONS (2)
  - ANTERIOR CHAMBER INFLAMMATION [None]
  - DEAFNESS [None]
